FAERS Safety Report 18113044 (Version 5)
Quarter: 2020Q4

REPORT INFORMATION
  Report Type: Report from Study
  Country: US (occurrence: US)
  Receive Date: 20200805
  Receipt Date: 20201007
  Transmission Date: 20210113
  Serious: Yes (Hospitalization)
  Sender: FDA-Public Use
  Company Number: US-JNJFOC-20200801449

PATIENT
  Age: 13 Year
  Sex: Male
  Weight: 33 kg

DRUGS (6)
  1. 5-ASA [Concomitant]
     Active Substance: MESALAMINE
  2. ALLOPURINOL. [Concomitant]
     Active Substance: ALLOPURINOL
  3. AZATHIOPRINE. [Concomitant]
     Active Substance: AZATHIOPRINE
  4. PREVACID [Concomitant]
     Active Substance: LANSOPRAZOLE
  5. INFLIXIMAB, RECOMBINANT [Suspect]
     Active Substance: INFLIXIMAB
     Indication: INFLAMMATORY BOWEL DISEASE
     Route: 042
     Dates: start: 20140214, end: 20200226
  6. ENTYVIO [Concomitant]
     Active Substance: VEDOLIZUMAB

REACTIONS (2)
  - Colitis ulcerative [Recovered/Resolved]
  - Sickle cell anaemia with crisis [Recovered/Resolved]

NARRATIVE: CASE EVENT DATE: 20200415
